FAERS Safety Report 7363376-1 (Version None)
Quarter: 2011Q1

REPORT INFORMATION
  Report Type: 
  Country: None (occurrence: None)
  Receive Date: 20110321
  Receipt Date: 20101007
  Transmission Date: 20110831
  Serious: Yes (Hospitalization, Other)
  Sender: FDA-Public Use
  Company Number: US-BAYER-201013228NA

PATIENT
  Sex: Female
  Weight: 70.909 kg

DRUGS (5)
  1. OCELLA [Suspect]
  2. LO/OVRAL [Concomitant]
     Indication: PRODUCT USED FOR UNKNOWN INDICATION
     Dosage: UNK
     Dates: start: 20030610, end: 20040601
  3. YAZ [Suspect]
     Dosage: AS USED DOSE: UNK
     Route: 048
  4. VICODIN [Concomitant]
     Indication: PAIN
     Dosage: UNK
     Dates: start: 20040423
  5. MACROBID [Concomitant]
     Indication: PRODUCT USED FOR UNKNOWN INDICATION
     Route: 048

REACTIONS (3)
  - BILIARY COLIC [None]
  - PAIN [None]
  - CHOLELITHIASIS [None]
